FAERS Safety Report 9827268 (Version 3)
Quarter: 2014Q1

REPORT INFORMATION
  Report Type: Spontaneous
  Country: US (occurrence: US)
  Receive Date: 20140117
  Receipt Date: 20140327
  Transmission Date: 20141002
  Serious: Yes (Hospitalization)
  Sender: FDA-Public Use
  Company Number: US-BRISTOL-MYERS SQUIBB COMPANY-19840792

PATIENT
  Age: 69 Year
  Sex: Male
  Weight: 103 kg

DRUGS (6)
  1. YERVOY [Suspect]
     Indication: MALIGNANT MELANOMA
     Dosage: 3RD CYCLE OF YERVOY ON 18NOV2013 ?23OCT13, 19NOV13?300MG
     Route: 042
     Dates: start: 20131004
  2. ACETYLSALICYLIC ACID [Concomitant]
  3. DILTIAZEM HCL [Concomitant]
  4. VITAMIN D [Concomitant]
  5. XARELTO [Concomitant]
  6. ZOCOR [Concomitant]

REACTIONS (3)
  - Diarrhoea [Not Recovered/Not Resolved]
  - Colitis [Unknown]
  - Haematochezia [Not Recovered/Not Resolved]
